FAERS Safety Report 6008178-3 (Version None)
Quarter: 2008Q4

REPORT INFORMATION
  Report Type: 
  Country: None (occurrence: None)
  Receive Date: 20081215
  Receipt Date: 20081204
  Transmission Date: 20090506
  Serious: Yes (Hospitalization)
  Sender: FDA-Public Use
  Company Number: 2008SP024869

PATIENT
  Age: 77 Year
  Sex: Female

DRUGS (6)
  1. DIAFUSOR (GLYCERYL TRINITRATE) (GLYCERYL TRINITRATE) [Suspect]
     Dosage: CUT
  2. ZESTRIL [Suspect]
     Dosage: 5 MG; QD
  3. LASIX [Suspect]
     Dosage: 40 MG; QD
  4. LEVOTHYROX [Concomitant]
  5. DIPROLEN [Concomitant]
  6. CORTANCYL [Concomitant]

REACTIONS (2)
  - BALANCE DISORDER [None]
  - ORTHOSTATIC HYPOTENSION [None]
